FAERS Safety Report 8974277 (Version 1)
Quarter: 2012Q4

REPORT INFORMATION
  Report Type: Spontaneous
  Country: US (occurrence: None)
  Receive Date: 20121212
  Receipt Date: 20121212
  Transmission Date: 20130627
  Serious: Yes (Hospitalization)
  Sender: FDA-Public Use
  Company Number: 1521361

PATIENT
  Age: 59 Year
  Sex: Female

DRUGS (3)
  1. PENTOSTATIN [Suspect]
     Indication: CLL
     Route: 042
     Dates: start: 20120203, end: 20120317
  2. RITUXAN [Suspect]
     Indication: CLL
     Route: 041
     Dates: start: 20120203, end: 20120317
  3. CYTOXAN [Suspect]
     Route: 041
     Dates: start: 20120203, end: 20120317

REACTIONS (9)
  - Inappropriate antidiuretic hormone secretion [None]
  - Transaminases increased [None]
  - Malnutrition [None]
  - Pyrexia [None]
  - Asthenia [None]
  - Iron deficiency anaemia [None]
  - Enterococcal infection [None]
  - Sinus tachycardia [None]
  - Diarrhoea [None]
